FAERS Safety Report 10223369 (Version 1)
Quarter: 2014Q2

REPORT INFORMATION
  Report Type: Spontaneous
  Country: US (occurrence: US)
  Receive Date: 20140609
  Receipt Date: 20140609
  Transmission Date: 20141212
  Serious: No
  Sender: FDA-Public Use
  Company Number: US-DRREDDYS-USA/USA/13/0030343

PATIENT
  Age: 69 Year
  Sex: Male

DRUGS (1)
  1. FEXOFENADINE HCL  OTC [Suspect]
     Indication: HYPERSENSITIVITY
     Dosage: 180 MG ONCE DAILY
     Route: 048
     Dates: start: 20130623, end: 20130627

REACTIONS (2)
  - Headache [Recovered/Resolved]
  - Malaise [Unknown]
